FAERS Safety Report 6161841-6 (Version None)
Quarter: 2009Q2

REPORT INFORMATION
  Report Type: 
  Country: None (occurrence: None)
  Receive Date: 20090417
  Receipt Date: 20090417
  Transmission Date: 20091009
  Serious: No
  Sender: FDA-Public Use
  Company Number: None

PATIENT
  Age: 71 Year
  Sex: Female
  Weight: 53.0709 kg

DRUGS (2)
  1. LEVAQUIN [Suspect]
     Indication: LIMB INJURY
     Dosage: 1 DAILY PO
     Route: 048
     Dates: start: 20070731, end: 20070806
  2. LEVAQUIN [Suspect]
     Indication: WOUND
     Dosage: 1 DAILY PO
     Route: 048
     Dates: start: 20070731, end: 20070806

REACTIONS (4)
  - ARTHRALGIA [None]
  - MUSCULOSKELETAL STIFFNESS [None]
  - MYALGIA [None]
  - PRODUCT QUALITY ISSUE [None]
